FAERS Safety Report 5262137-7 (Version None)
Quarter: 2007Q1

REPORT INFORMATION
  Report Type: 
  Country: None (occurrence: None)
  Receive Date: 20070311
  Receipt Date: 20070228
  Transmission Date: 20070707
  Serious: Yes (Hospitalization)
  Sender: FDA-Public Use
  Company Number: 2005UW13295

PATIENT
  Age: 590 Month
  Sex: Male

DRUGS (7)
  1. SEROQUEL [Suspect]
     Dosage: 100 - 300 MG
     Route: 048
     Dates: start: 20000101
  2. THORAZINE [Concomitant]
     Dosage: '90'S APPROXIMATELY ONE MONTH'
  3. MIRTAZAPINE [Concomitant]
     Dates: start: 20060101
  4. CLONAZEPAM [Concomitant]
     Dates: start: 20030101
  5. TEMAZPAM [Concomitant]
     Dates: start: 20060101
  6. GAPAPENTIN [Concomitant]
     Dates: start: 19960101
  7. TRILEPTIAL [Concomitant]
     Dates: start: 20060601

REACTIONS (5)
  - DIABETES MELLITUS NON-INSULIN-DEPENDENT [None]
  - DIABETIC KETOACIDOSIS [None]
  - DIABETIC NEUROPATHY [None]
  - HYPERGLYCAEMIA [None]
  - ILL-DEFINED DISORDER [None]
